FAERS Safety Report 11202314 (Version 1)
Quarter: 2015Q2

REPORT INFORMATION
  Report Type: Report from Study
  Country: US (occurrence: US)
  Receive Date: 20150619
  Receipt Date: 20150619
  Transmission Date: 20150821
  Serious: Yes (Other)
  Sender: FDA-Public Use
  Company Number: US-ASTELLAS-2015US020737

PATIENT
  Sex: Female

DRUGS (2)
  1. ERLOTINIB [Suspect]
     Active Substance: ERLOTINIB
     Indication: RESPIRATORY TRACT NEOPLASM
     Route: 065
  2. ARICEPT [Concomitant]
     Active Substance: DONEPEZIL HYDROCHLORIDE
     Indication: PRODUCT USED FOR UNKNOWN INDICATION
     Dosage: UNK UNK, UNKNOWN FREQ.
     Route: 065

REACTIONS (9)
  - Metastases to central nervous system [Unknown]
  - Hearing impaired [Unknown]
  - Memory impairment [Unknown]
  - Fatigue [Unknown]
  - Confusional state [Unknown]
  - Faecal incontinence [Unknown]
  - Malaise [Unknown]
  - Cough [Unknown]
  - Rash [Unknown]
